FAERS Safety Report 16763710 (Version 6)
Quarter: 2022Q1

REPORT INFORMATION
  Report Type: Spontaneous
  Country: US (occurrence: US)
  Receive Date: 20190902
  Receipt Date: 20220310
  Transmission Date: 20220424
  Serious: No
  Sender: FDA-Public Use
  Company Number: US-PFIZER INC-2019025770

PATIENT
  Age: 72 Year
  Sex: Female

DRUGS (4)
  1. LYRICA [Suspect]
     Active Substance: PREGABALIN
     Indication: Brachial plexus injury
     Dosage: 100 MG, 4X/DAY
     Route: 048
  2. LYRICA [Suspect]
     Active Substance: PREGABALIN
     Indication: Monoplegia
     Dosage: 600 MG (MAXIMUM TO 6 PILLS), DAILY
  3. LYRICA [Suspect]
     Active Substance: PREGABALIN
     Indication: Neuralgic amyotrophy
  4. LORAZEPAM [Concomitant]
     Active Substance: LORAZEPAM
     Indication: Sleep disorder
     Dosage: UNK

REACTIONS (2)
  - Illness [Unknown]
  - Pain [Unknown]
